FAERS Safety Report 13108840 (Version 1)
Quarter: 2017Q1

REPORT INFORMATION
  Report Type: Spontaneous
  Country: PT (occurrence: PT)
  Receive Date: 20170112
  Receipt Date: 20170112
  Transmission Date: 20170428
  Serious: Yes (Other)
  Sender: FDA-Public Use
  Company Number: PT-GLAXOSMITHKLINE-PT2017GSK003354

PATIENT
  Sex: Female

DRUGS (1)
  1. VOLTAREN [Suspect]
     Active Substance: DICLOFENAC SODIUM
     Indication: TOOTHACHE
     Dosage: UNK
     Route: 048
     Dates: start: 2016

REACTIONS (5)
  - Dyspnoea [Recovered/Resolved]
  - Eye pruritus [Recovered/Resolved]
  - Nasal obstruction [Recovered/Resolved]
  - Rhinorrhoea [Recovered/Resolved]
  - Cough [Unknown]

NARRATIVE: CASE EVENT DATE: 2016
